FAERS Safety Report 20782661 (Version 1)
Quarter: 2022Q2

REPORT INFORMATION
  Report Type: Report from Study
  Country: US (occurrence: US)
  Receive Date: 20220504
  Receipt Date: 20220504
  Transmission Date: 20220721
  Serious: Yes (Other)
  Sender: FDA-Public Use
  Company Number: US-GLAXOSMITHKLINE-US2022039108

PATIENT
  Age: 71 Year
  Sex: Male

DRUGS (9)
  1. BELANTAMAB MAFODOTIN [Suspect]
     Active Substance: BELANTAMAB MAFODOTIN
     Indication: Plasma cell myeloma refractory
     Dosage: UNK
     Dates: start: 20220204
  2. ZOVIRAX [Suspect]
     Active Substance: ACYCLOVIR
     Indication: Product used for unknown indication
     Dosage: 400 MG, BID
     Route: 048
     Dates: start: 20220322
  3. AUGMENTIN [Suspect]
     Active Substance: AMOXICILLIN\CLAVULANATE POTASSIUM
     Indication: Product used for unknown indication
     Dosage: 1 DF, BID (875-125MG)
     Route: 048
  4. NORVASC [Suspect]
     Active Substance: AMLODIPINE BESYLATE
     Indication: Product used for unknown indication
     Dosage: 5 MG, QD
     Route: 048
     Dates: start: 20220322
  5. ASPIRIN [Suspect]
     Active Substance: ASPIRIN
     Indication: Product used for unknown indication
     Dosage: 325 MG, QD
     Route: 048
     Dates: start: 20220322
  6. TRAZODONE HYDROCHLORIDE [Suspect]
     Active Substance: TRAZODONE HYDROCHLORIDE
     Indication: Sleep disorder
     Dosage: 50 MG, QD, AT BEDTIME AS NEEDED FOR SLEEP
     Route: 048
     Dates: start: 20220322
  7. BENZONATATE [Suspect]
     Active Substance: BENZONATATE
     Indication: Product used for unknown indication
     Dosage: 100 MG, TID
     Route: 048
  8. CALCIUM\VITAMIN D [Suspect]
     Active Substance: CALCIUM\VITAMIN D
     Indication: Nausea
     Dosage: 1 DF (600-200 MG EVERY 6 HOURS AS NEEDED)
     Route: 048
  9. CALCIUM\VITAMIN D [Suspect]
     Active Substance: CALCIUM\VITAMIN D
     Indication: Vomiting

REACTIONS (14)
  - Vitreous detachment [Unknown]
  - Posterior capsule opacification [Unknown]
  - Macular degeneration [Unknown]
  - Visual acuity reduced [Recovered/Resolved]
  - Keratopathy [Unknown]
  - Dry eye [Recovered/Resolved]
  - Intraocular lens implant [Unknown]
  - Vision blurred [Unknown]
  - Diplopia [Unknown]
  - Nausea [Unknown]
  - Vomiting [Unknown]
  - Sleep disorder [Unknown]
  - Presbyopia [Unknown]
  - Dermatochalasis [Unknown]

NARRATIVE: CASE EVENT DATE: 20220301
